FAERS Safety Report 6535060-5 (Version None)
Quarter: 2010Q1

REPORT INFORMATION
  Report Type: 
  Country: None (occurrence: None)
  Receive Date: 20100111
  Receipt Date: 20100111
  Transmission Date: 20100710
  Serious: Yes (Other)
  Sender: FDA-Public Use
  Company Number: None

PATIENT
  Age: 56 Year
  Sex: Female
  Weight: 85.2762 kg

DRUGS (1)
  1. TOPAMAX [Suspect]
     Indication: MIGRAINE

REACTIONS (5)
  - ARTHROPATHY [None]
  - BACK DISORDER [None]
  - FALL [None]
  - GAIT DISTURBANCE [None]
  - PAIN [None]
